FAERS Safety Report 4601925-4 (Version None)
Quarter: 2005Q2

REPORT INFORMATION
  Report Type: 
  Country: None (occurrence: None)
  Receive Date: 20050201
  Receipt Date: 20040216
  Transmission Date: 20051028
  Serious: Yes (Other)
  Sender: FDA-Public Use
  Company Number: 200412749BWH

PATIENT
  Age: 58 Year
  Sex: Male
  Weight: 95.2554 kg

DRUGS (3)
  1. AVELOX [Suspect]
     Indication: BRONCHOPNEUMONIA
     Dosage: 400 MG, QD, ORAL
     Route: 048
     Dates: start: 20040206, end: 20040209
  2. ADVIL [Concomitant]
  3. HYDROTUSSIN [Concomitant]

REACTIONS (5)
  - CLAUSTROPHOBIA [None]
  - CONFUSIONAL STATE [None]
  - DELUSION [None]
  - FEELING JITTERY [None]
  - PSYCHOTIC DISORDER [None]
